FAERS Safety Report 7282461-6 (Version None)
Quarter: 2011Q1

REPORT INFORMATION
  Report Type: 
  Country: None (occurrence: None)
  Receive Date: 20110209
  Receipt Date: 20110202
  Transmission Date: 20110831
  Serious: Yes (Life-Threatening, Hospitalization)
  Sender: FDA-Public Use
  Company Number: DE-BRISTOL-MYERS SQUIBB COMPANY-15527344

PATIENT
  Age: 79 Year
  Sex: Male
  Weight: 89 kg

DRUGS (7)
  1. ORENCIA [Suspect]
     Indication: RHEUMATOID ARTHRITIS
     Route: 042
     Dates: start: 20080731, end: 20101102
  2. PREDNISOLONE [Suspect]
     Indication: RHEUMATOID ARTHRITIS
     Route: 048
     Dates: start: 20030101
  3. LORZAAR [Suspect]
     Indication: HYPERTENSION
     Route: 048
     Dates: start: 19950101
  4. PIRETANIDE [Suspect]
     Indication: HYPERTENSION
     Route: 048
  5. METHOTREXATE [Suspect]
     Indication: RHEUMATOID ARTHRITIS
     Route: 048
     Dates: start: 20080601, end: 20101101
  6. ARELIX [Suspect]
     Indication: HYPERTENSION
     Route: 048
  7. DOXAZOSIN [Suspect]
     Indication: HYPERTENSION
     Route: 048

REACTIONS (3)
  - MYOCARDIAL INFARCTION [None]
  - CARDIAC ARREST [None]
  - PNEUMONIA ASPIRATION [None]
